FAERS Safety Report 5765288-3 (Version None)
Quarter: 2008Q2

REPORT INFORMATION
  Report Type: 
  Country: None (occurrence: None)
  Receive Date: 20080611
  Receipt Date: 20080605
  Transmission Date: 20081010
  Serious: Yes (Hospitalization)
  Sender: FDA-Public Use
  Company Number: US-GILEAD-2008-0016793

PATIENT
  Sex: Female

DRUGS (7)
  1. LETAIRIS [Suspect]
     Indication: PULMONARY HYPERTENSION
     Route: 048
     Dates: start: 20080110
  2. TRAMADOL HCL [Concomitant]
  3. INSULIN INSULATARD NPH NORDISK [Concomitant]
     Dosage: 70/30
  4. CERIVASTATIN [Concomitant]
  5. ASPIRIN [Concomitant]
  6. ENALAPRIL MALEATE [Concomitant]
     Route: 048
  7. REGLAN [Concomitant]
     Route: 048

REACTIONS (1)
  - CELLULITIS [None]
